FAERS Safety Report 7884175-8 (Version None)
Quarter: 2011Q4

REPORT INFORMATION
  Report Type: 
  Country: None (occurrence: None)
  Receive Date: 20111102
  Receipt Date: 20111017
  Transmission Date: 20120403
  Serious: Yes (Hospitalization)
  Sender: FDA-Public Use
  Company Number: JP-GLAXOSMITHKLINE-B0757117A

PATIENT
  Sex: Female

DRUGS (4)
  1. LITHIUM CARBONATE [Concomitant]
     Indication: BIPOLAR I DISORDER
     Dosage: 400MG PER DAY
     Route: 048
  2. ZYPREXA [Concomitant]
     Dosage: 5MG PER DAY
  3. LAMICTAL [Suspect]
     Indication: BIPOLAR DISORDER
     Dosage: 50MG PER DAY
     Route: 048
     Dates: start: 20110908, end: 20110928
  4. SEROQUEL [Concomitant]
     Indication: BIPOLAR I DISORDER
     Dosage: 200MG PER DAY
     Route: 048

REACTIONS (6)
  - FALL [None]
  - DRUG ERUPTION [None]
  - PLATELET COUNT DECREASED [None]
  - PYREXIA [None]
  - DIZZINESS [None]
  - WHITE BLOOD CELL COUNT DECREASED [None]
